FAERS Safety Report 10450636 (Version 2)
Quarter: 2014Q3

REPORT INFORMATION
  Report Type: Spontaneous
  Country: FR (occurrence: FR)
  Receive Date: 20140912
  Receipt Date: 20140918
  Transmission Date: 20150326
  Serious: Yes (Hospitalization, Other)
  Sender: FDA-Public Use
  Company Number: FR-BRISTOL-MYERS SQUIBB COMPANY-21375373

PATIENT
  Age: 79 Year
  Sex: Female

DRUGS (10)
  1. PRETERAX [Concomitant]
     Active Substance: INDAPAMIDE\PERINDOPRIL
  2. LIPANTHYL [Concomitant]
     Active Substance: FENOFIBRATE
  3. NOVONORM [Concomitant]
     Active Substance: REPAGLINIDE
  4. KETOCONAZOLE. [Suspect]
     Active Substance: KETOCONAZOLE
     Dosage: CUTANEOUSLY
     Dates: start: 20140421
  5. BISOPROLOL [Concomitant]
     Active Substance: BISOPROLOL
  6. ALDACTONE [Concomitant]
     Active Substance: SPIRONOLACTONE
  7. COUMADINE [Suspect]
     Active Substance: WARFARIN SODIUM
     Dosage: INTRPTED ON 30APR14?2 MG, COATED TABLET (WARFARIN SODIUM)2.5TAB DAILY ?RESTARTED ON 02-MAY-2014
     Route: 048
  8. DIGOXINE [Concomitant]
     Active Substance: DIGOXIN
  9. ECONAZOLE [Suspect]
     Active Substance: ECONAZOLE
     Dosage: CUTANEOUSLY ?ECONAZOLE EMULSION
     Dates: start: 20140421, end: 20140506
  10. LASILIX [Concomitant]
     Active Substance: FUROSEMIDE

REACTIONS (5)
  - Hypoprothrombinaemia [Recovered/Resolved]
  - Venous thrombosis limb [Unknown]
  - Erysipelas [Unknown]
  - Haematuria [Recovered/Resolved]
  - Dyspnoea [Unknown]

NARRATIVE: CASE EVENT DATE: 201404
